FAERS Safety Report 23748865 (Version 1)
Quarter: 2024Q2

REPORT INFORMATION
  Report Type: Report from Study
  Country: US (occurrence: US)
  Receive Date: 20240416
  Receipt Date: 20240416
  Transmission Date: 20240716
  Serious: Yes (Other)
  Sender: FDA-Public Use
  Company Number: US-ABBVIE-5685527

PATIENT
  Sex: Female

DRUGS (1)
  1. HUMIRA [Suspect]
     Active Substance: ADALIMUMAB
     Indication: Juvenile idiopathic arthritis
     Dosage: FORM STRENGTH: 40 MILLIGRAM CITRATE FREE
     Route: 058
     Dates: start: 20230802

REACTIONS (9)
  - Epilepsy [Recovered/Resolved]
  - Migraine [Recovered/Resolved]
  - Nasal operation [Recovered/Resolved]
  - Vision blurred [Unknown]
  - Staphylococcal infection [Recovered/Resolved with Sequelae]
  - Pain [Recovered/Resolved]
  - Nasal mucosal erosion [Unknown]
  - Musculoskeletal stiffness [Recovered/Resolved]
  - Therapeutic response shortened [Unknown]
